FAERS Safety Report 9428423 (Version 1)
Quarter: 2013Q3

REPORT INFORMATION
  Report Type: Report from Study
  Country: US (occurrence: US)
  Receive Date: 20130730
  Receipt Date: 20130730
  Transmission Date: 20140515
  Serious: No
  Sender: FDA-Public Use
  Company Number: US-ABBOTT-12P-163-1007463-00

PATIENT
  Age: 52 Year
  Sex: Female
  Weight: 108.96 kg

DRUGS (6)
  1. NIASPAN (COATED) [Suspect]
     Dosage: AT BEDTIME
     Dates: start: 201211
  2. JANUVIA [Concomitant]
     Indication: PRODUCT USED FOR UNKNOWN INDICATION
  3. GLIPIZIDE [Concomitant]
     Indication: PRODUCT USED FOR UNKNOWN INDICATION
  4. METFORMIN [Concomitant]
     Indication: PRODUCT USED FOR UNKNOWN INDICATION
  5. LISINOPRIL [Concomitant]
     Indication: PRODUCT USED FOR UNKNOWN INDICATION
  6. ASA [Concomitant]
     Indication: PRODUCT USED FOR UNKNOWN INDICATION

REACTIONS (2)
  - Pruritus [Recovered/Resolved]
  - Abdominal pain [Recovered/Resolved]
